FAERS Safety Report 25727211 (Version 1)
Quarter: 2025Q3

REPORT INFORMATION
  Report Type: Report from Study
  Country: CA (occurrence: CA)
  Receive Date: 20250826
  Receipt Date: 20250826
  Transmission Date: 20251021
  Serious: Yes (Life-Threatening, Other)
  Sender: MYLAN
  Company Number: CA-MYLANLABS-2025M1070979

PATIENT
  Age: 3 Decade
  Sex: Male

DRUGS (8)
  1. CLOZAPINE [Interacting]
     Active Substance: CLOZAPINE
     Indication: Schizophrenia
  2. CLOZAPINE [Interacting]
     Active Substance: CLOZAPINE
  3. CLOZAPINE [Interacting]
     Active Substance: CLOZAPINE
     Dosage: 425 MILLIGRAM, QD, DOSE TITRATED-UP
  4. VALPROATE [Suspect]
     Active Substance: VALPROIC ACID
     Indication: Schizophrenia
  5. OLANZAPINE [Interacting]
     Active Substance: OLANZAPINE
     Indication: Schizophrenia
  6. LAMOTRIGINE [Concomitant]
     Active Substance: LAMOTRIGINE
     Indication: Schizophrenia
  7. AMISULPRIDE [Concomitant]
     Active Substance: AMISULPRIDE
     Indication: Schizophrenia
  8. CLONAZEPAM [Concomitant]
     Active Substance: CLONAZEPAM
     Indication: Schizophrenia

REACTIONS (6)
  - Drug interaction [Recovered/Resolved]
  - Myocarditis [Recovered/Resolved]
  - Tachycardia [Unknown]
  - Constipation [Unknown]
  - Weight increased [Unknown]
  - Off label use [Unknown]
